FAERS Safety Report 8406031-9 (Version None)
Quarter: 2012Q2

REPORT INFORMATION
  Report Type: 
  Country: None (occurrence: None)
  Receive Date: 20120604
  Receipt Date: 20120529
  Transmission Date: 20120825
  Serious: No
  Sender: FDA-Public Use
  Company Number: US-PFIZER INC-2012129820

PATIENT
  Age: 8 Year
  Sex: Male

DRUGS (1)
  1. ADVIL MIGRAINE LIQUI-GELS [Suspect]
     Dosage: UNK
     Route: 048

REACTIONS (1)
  - PARAESTHESIA [None]
